FAERS Safety Report 7485144-2 (Version None)
Quarter: 2011Q2

REPORT INFORMATION
  Report Type: 
  Country: None (occurrence: None)
  Receive Date: 20110517
  Receipt Date: 20101123
  Transmission Date: 20111010
  Serious: Yes (Other)
  Sender: FDA-Public Use
  Company Number: US-BAYER-201033252NA

PATIENT
  Age: 30 Year
  Sex: Female
  Weight: 65.909 kg

DRUGS (13)
  1. SYNTHROID [Concomitant]
     Dosage: 25 ?G, UNK
     Route: 048
     Dates: start: 20080101
  2. LEVOTHYROXINE SODIUM [Concomitant]
     Route: 048
  3. LEVOTHYROXINE SODIUM [Concomitant]
     Dosage: UNK
     Dates: start: 20090101
  4. PAROXETINE HYDROCHLORIDE [Concomitant]
     Dosage: 10 MG, UNK
     Route: 048
     Dates: start: 20080101
  5. ADVIL LIQUI-GELS [Concomitant]
  6. YAZ [Suspect]
     Indication: ORAL CONTRACEPTION
     Route: 048
     Dates: start: 20070201, end: 20090701
  7. ANTIBIOTICS [Concomitant]
     Dates: start: 20080101, end: 20090101
  8. ELMIRON [Concomitant]
     Dosage: 100 MG, UNK
     Dates: start: 20080101
  9. TRAZODONE HCL [Concomitant]
     Dosage: UNK
     Route: 048
     Dates: start: 20090101
  10. PROSED/DS [Concomitant]
     Dosage: UNK
     Dates: start: 20080101
  11. YASMIN [Suspect]
     Indication: ORAL CONTRACEPTION
     Route: 048
     Dates: start: 20020101, end: 20070101
  12. VITAMIN D [Concomitant]
     Dosage: UNK
     Dates: start: 20090101
  13. ANEMAGEN [ASCORBIC ACID,CYANOCOBALAMIN,FERROUS FUMARATE] [Concomitant]
     Dosage: UNK
     Dates: start: 20090101

REACTIONS (12)
  - VOMITING [None]
  - ANXIETY [None]
  - WEIGHT INCREASED [None]
  - MIGRAINE [None]
  - CHOLELITHIASIS [None]
  - LIBIDO DECREASED [None]
  - DIZZINESS [None]
  - FATIGUE [None]
  - DEPRESSION [None]
  - ASTHENIA [None]
  - MOOD SWINGS [None]
  - CHOLECYSTITIS CHRONIC [None]
